FAERS Safety Report 8724846 (Version 10)
Quarter: 2015Q1

REPORT INFORMATION
  Report Type: Report from Study
  Country: IT (occurrence: IT)
  Receive Date: 20120815
  Receipt Date: 20150113
  Transmission Date: 20150721
  Serious: Yes (Life-Threatening, Hospitalization, Disabling)
  Sender: FDA-Public Use
  Company Number: IT-ROCHE-1100027

PATIENT
  Age: 57 Year
  Sex: Female

DRUGS (6)
  1. VEMURAFENIB [Suspect]
     Active Substance: VEMURAFENIB
     Indication: METASTATIC MALIGNANT MELANOMA
     Dosage: LAST DOSE PRIOR TO SAE 20/JUN/2012
     Route: 048
     Dates: start: 20111026, end: 20120703
  2. TACHIPIRINA [Concomitant]
     Active Substance: ACETAMINOPHEN
     Route: 065
     Dates: start: 201207
  3. TACHIPIRINA [Concomitant]
     Active Substance: ACETAMINOPHEN
     Route: 065
     Dates: start: 20120705, end: 20120708
  4. ARANESP [Concomitant]
     Active Substance: DARBEPOETIN ALFA
     Route: 065
     Dates: start: 20120622
  5. ALPRAZOLAM. [Concomitant]
     Active Substance: ALPRAZOLAM
     Route: 065
     Dates: start: 201108
  6. VEMURAFENIB [Suspect]
     Active Substance: VEMURAFENIB
     Route: 048
     Dates: start: 20120705

REACTIONS (1)
  - Dysphagia [Recovered/Resolved]

NARRATIVE: CASE EVENT DATE: 20120703
